FAERS Safety Report 5052428-7 (Version None)
Quarter: 2006Q3

REPORT INFORMATION
  Report Type: 
  Country: None (occurrence: None)
  Receive Date: 20060714
  Receipt Date: 20060714
  Transmission Date: 20061208
  Serious: Yes (Hospitalization)
  Sender: FDA-Public Use
  Company Number: None

PATIENT
  Sex: Female
  Weight: 77.5 kg

DRUGS (8)
  1. CYCLOPHOSPHAMIDE [Suspect]
     Dosage: 1860 MG
  2. CYTARABINE [Suspect]
     Dosage: 560 MG
  3. DAUNORUBICIN HCL [Suspect]
     Dosage: 188 MG
  4. MERCAPTOPURINE [Suspect]
     Dosage: 0 MG
  5. METHOTREXATE [Suspect]
     Dosage: 45 MG
  6. PEG-L-ASPARAGINASE (K-H) [Suspect]
     Dosage: 4675 IU
  7. PREDNISONE [Suspect]
     Dosage: 3080 MG
  8. VINCRISTINE SULFATE [Suspect]
     Dosage: 8 MG

REACTIONS (18)
  - ABDOMINAL PAIN [None]
  - ASCITES [None]
  - BLOOD BILIRUBIN INCREASED [None]
  - CARDIAC TAMPONADE [None]
  - CENTRAL LINE INFECTION [None]
  - COMPUTERISED TOMOGRAM ABDOMEN ABNORMAL [None]
  - DEPRESSED LEVEL OF CONSCIOUSNESS [None]
  - DIALYSIS [None]
  - DISSEMINATED TUBERCULOSIS [None]
  - HYPOTENSION [None]
  - MULTI-ORGAN FAILURE [None]
  - OXYGEN SATURATION DECREASED [None]
  - PERITONEAL EFFUSION [None]
  - PLEURAL EFFUSION [None]
  - RESPIRATORY DISTRESS [None]
  - SEPSIS [None]
  - SPLEEN DISORDER [None]
  - STAPHYLOCOCCAL INFECTION [None]
